FAERS Safety Report 6210863-5 (Version None)
Quarter: 2009Q2

REPORT INFORMATION
  Report Type: 
  Country: None (occurrence: None)
  Receive Date: 20090527
  Receipt Date: 20090514
  Transmission Date: 20091009
  Serious: Yes (Hospitalization)
  Sender: FDA-Public Use
  Company Number: 233849K09USA

PATIENT
  Age: 51 Year
  Sex: Female
  Weight: 59 kg

DRUGS (3)
  1. REBIF [Suspect]
     Indication: MULTIPLE SCLEROSIS
     Dosage: 44 MCG, 3 IN 1 WEEKS, SUBCUTANEOUS
     Route: 058
  2. PERCOCET [Concomitant]
  3. AMBIEN [Concomitant]

REACTIONS (10)
  - ANAEMIA [None]
  - ANXIETY [None]
  - DEPRESSION [None]
  - DYSLIPIDAEMIA [None]
  - ESCHERICHIA URINARY TRACT INFECTION [None]
  - GASTRITIS [None]
  - HELICOBACTER INFECTION [None]
  - IMPAIRED GASTRIC EMPTYING [None]
  - MULTIPLE SCLEROSIS RELAPSE [None]
  - WEIGHT DECREASED [None]
